FAERS Safety Report 17991196 (Version 2)
Quarter: 2020Q3

REPORT INFORMATION
  Report Type: Report from Study
  Country: US (occurrence: US)
  Receive Date: 20200707
  Receipt Date: 20200721
  Transmission Date: 20201103
  Serious: Yes (Other)
  Sender: FDA-Public Use
  Company Number: US-ACTELION-A-US2020-206739

PATIENT
  Age: 7 Month
  Sex: Female

DRUGS (8)
  1. MULTIVITAMINS [VITAMINS NOS] [Concomitant]
     Active Substance: VITAMINS
  2. MELATONIN [Concomitant]
     Active Substance: MELATONIN
  3. SILDENAFIL. [Concomitant]
     Active Substance: SILDENAFIL
  4. BUDESONIDE. [Concomitant]
     Active Substance: BUDESONIDE
  5. TIMOLOL. [Concomitant]
     Active Substance: TIMOLOL
  6. TRACLEER [Suspect]
     Active Substance: BOSENTAN
     Indication: PULMONARY HYPERTENSION
     Dosage: 8 MG, BID
     Route: 048
     Dates: start: 202005
  7. IRON [Concomitant]
     Active Substance: IRON
  8. LACTOBACILLUS [Concomitant]
     Active Substance: LACTOBACILLUS ACIDOPHILUS

REACTIONS (1)
  - Heart rate decreased [Unknown]

NARRATIVE: CASE EVENT DATE: 20200622
